FAERS Safety Report 5431347-8 (Version None)
Quarter: 2007Q3

REPORT INFORMATION
  Report Type: 
  Country: None (occurrence: None)
  Receive Date: 20070830
  Receipt Date: 20070430
  Transmission Date: 20080115
  Serious: No
  Sender: FDA-Public Use
  Company Number: A0649550A

PATIENT
  Sex: Male

DRUGS (14)
  1. WELLBUTRIN XL [Suspect]
     Indication: DEPRESSION
     Dosage: 150MG PER DAY
     Route: 048
     Dates: start: 20060527, end: 20070117
  2. HYZAAR [Concomitant]
  3. TRICOR [Concomitant]
  4. NIASPAN [Concomitant]
  5. BUSPAR [Concomitant]
  6. VALIUM [Concomitant]
  7. FLEXERIL [Concomitant]
  8. SKELAXIN [Concomitant]
  9. METHYLPREDNISOLONE 16MG TAB [Concomitant]
  10. OXYCODONE HCL [Concomitant]
  11. MOTRIN [Concomitant]
  12. AMBIEN [Concomitant]
  13. LUNESTA [Concomitant]
  14. ROZEREM [Concomitant]

REACTIONS (4)
  - DRUG INEFFECTIVE [None]
  - DRUG TOLERANCE INCREASED [None]
  - DRY MOUTH [None]
  - THERAPEUTIC RESPONSE UNEXPECTED [None]
